FAERS Safety Report 8181300-9 (Version None)
Quarter: 2012Q1

REPORT INFORMATION
  Report Type: 
  Country: None (occurrence: None)
  Receive Date: 20120302
  Receipt Date: 20120223
  Transmission Date: 20120608
  Serious: Yes (Hospitalization, Other)
  Sender: FDA-Public Use
  Company Number: US-BAYER-2012-009689

PATIENT
  Age: 40 Year
  Sex: Female
  Weight: 54 kg

DRUGS (12)
  1. DROSPIRENONE AND ETHINYL ESTRADIOL [Suspect]
     Indication: ACNE
     Dosage: UNK
     Dates: start: 20050101, end: 20100401
  2. VALTREX [Concomitant]
     Indication: HERPES VIRUS INFECTION
     Dosage: UNK UNK, QD
     Route: 048
     Dates: start: 20010101
  3. YAZ [Suspect]
     Indication: ACNE
     Dosage: UNK
     Dates: start: 20050101, end: 20100401
  4. YASMIN [Suspect]
     Indication: ACNE
     Dosage: UNK
     Dates: start: 20050101, end: 20100401
  5. PRILOSEC [Concomitant]
     Dosage: 20 MG, QD
     Route: 048
  6. YASMIN [Suspect]
     Indication: CONTRACEPTION
  7. ALIGN [Concomitant]
  8. NEXIUM [Concomitant]
  9. ZYRTEC [Concomitant]
  10. YAZ [Suspect]
     Indication: CONTRACEPTION
  11. DROSPIRENONE AND ETHINYL ESTRADIOL [Suspect]
     Indication: CONTRACEPTION
  12. PROBIOTIC COMPLEX [Concomitant]
     Route: 048

REACTIONS (5)
  - BILIARY COLIC [None]
  - EMOTIONAL DISTRESS [None]
  - PROCEDURAL PAIN [None]
  - CHOLECYSTITIS CHRONIC [None]
  - DYSPEPSIA [None]
